FAERS Safety Report 19184851 (Version 2)
Quarter: 2021Q2

REPORT INFORMATION
  Report Type: Spontaneous
  Country: US (occurrence: US)
  Receive Date: 20210427
  Receipt Date: 20210610
  Transmission Date: 20210717
  Serious: Yes (Hospitalization, Other)
  Sender: FDA-Public Use
  Company Number: US-PFIZER INC-2021432127

PATIENT
  Age: 5 Year
  Sex: Male
  Weight: 20 kg

DRUGS (3)
  1. COCAINE [Suspect]
     Active Substance: COCAINE
     Indication: ANAESTHESIA
     Dosage: 236 MG
     Route: 002
  2. TETRACAINE. [Concomitant]
     Active Substance: TETRACAINE
     Indication: ANAESTHESIA
     Dosage: 10 MG
     Route: 002
  3. EPINEPHRINE. [Concomitant]
     Active Substance: EPINEPHRINE
     Indication: ANAESTHESIA
     Dosage: 1 MG
     Route: 002

REACTIONS (2)
  - Seizure [Recovered/Resolved]
  - Overdose [Recovered/Resolved]
